FAERS Safety Report 4608101-X (Version None)
Quarter: 2005Q2

REPORT INFORMATION
  Report Type: 
  Country: None (occurrence: None)
  Receive Date: 20050303
  Receipt Date: 20041026
  Transmission Date: 20051028
  Serious: No
  Sender: FDA-Public Use
  Company Number: 209959

PATIENT
  Sex: Female

DRUGS (4)
  1. XOLAIR [Suspect]
     Indication: ASTHMA
     Dosage: 150 MG, 1/MONTH, SUBCUTANEOUS
     Route: 058
     Dates: start: 20040625
  2. IMMUNE GLOBULIN INTRAVENOUS (HUMAN) [Concomitant]
  3. HUMIBID (GUAFENESIN) [Concomitant]
  4. ALLEGRA [Concomitant]

REACTIONS (2)
  - EYE DISORDER [None]
  - LIP DISORDER [None]
